FAERS Safety Report 10170347 (Version 4)
Quarter: 2014Q2

REPORT INFORMATION
  Report Type: Spontaneous
  Country: US (occurrence: US)
  Receive Date: 20140513
  Receipt Date: 20140602
  Transmission Date: 20141212
  Serious: Yes (Death, Other)
  Sender: FDA-Public Use
  Company Number: US-ROXANE LABORATORIES, INC.-2014-RO-00735RO

PATIENT
  Age: 84 Year
  Sex: Male
  Weight: 82 kg

DRUGS (3)
  1. DEXAMETHASONE [Suspect]
     Indication: PLASMA CELL MYELOMA
     Route: 048
     Dates: start: 20131114, end: 20140115
  2. DEXAMETHASONE [Suspect]
     Route: 048
     Dates: start: 20131114, end: 20140115
  3. BORTEZOMIB [Suspect]
     Indication: PLASMA CELL MYELOMA
     Route: 042
     Dates: start: 20131118, end: 20140106

REACTIONS (11)
  - Cardiac failure congestive [Fatal]
  - Pulmonary oedema [Not Recovered/Not Resolved]
  - Atrial fibrillation [Unknown]
  - Non-cardiac chest pain [Unknown]
  - Rib fracture [Unknown]
  - Metastases to spine [Unknown]
  - Thrombocytopenia [Unknown]
  - Dyspnoea [Unknown]
  - Decreased appetite [Unknown]
  - Nausea [Unknown]
  - Vomiting [Unknown]
